FAERS Safety Report 8463387-9 (Version None)
Quarter: 2012Q2

REPORT INFORMATION
  Report Type: 
  Country: None (occurrence: None)
  Receive Date: 20120625
  Receipt Date: 20120619
  Transmission Date: 20120825
  Serious: Yes (Life-Threatening, Hospitalization, Other)
  Sender: FDA-Public Use
  Company Number: US-ASTRAZENECA-2012SE28966

PATIENT
  Age: 56 Year
  Sex: Male

DRUGS (3)
  1. NEXIUM [Suspect]
     Route: 048
     Dates: start: 20020101
  2. LANTUS [Concomitant]
     Dates: start: 19820101
  3. HUMALOG [Concomitant]
     Dates: start: 19820101

REACTIONS (5)
  - COMA [None]
  - BLOOD GLUCOSE DECREASED [None]
  - CONVULSION [None]
  - NOSOCOMIAL INFECTION [None]
  - MALAISE [None]
